FAERS Safety Report 23838056 (Version 1)
Quarter: 2024Q2

REPORT INFORMATION
  Report Type: Spontaneous
  Country: CN (occurrence: CN)
  Receive Date: 20240509
  Receipt Date: 20240509
  Transmission Date: 20240715
  Serious: Yes (Other)
  Sender: FDA-Public Use
  Company Number: CN-NAPPMUNDI-GBR-2024-0116475

PATIENT
  Age: 69 Year
  Sex: Male
  Weight: 50 kg

DRUGS (1)
  1. MORPHINE SULFATE [Suspect]
     Active Substance: MORPHINE SULFATE
     Indication: Analgesic therapy
     Dosage: 30 MILLIGRAM, DAILY
     Route: 048
     Dates: start: 20240416, end: 20240416

REACTIONS (4)
  - Altered state of consciousness [Recovered/Resolved]
  - Coma [Recovered/Resolved]
  - Hypotension [Recovered/Resolved]
  - Inappropriate schedule of product administration [Unknown]

NARRATIVE: CASE EVENT DATE: 20240416
